FAERS Safety Report 11466973 (Version 1)
Quarter: 2015Q3

REPORT INFORMATION
  Report Type: Report from Study
  Country: US (occurrence: US)
  Receive Date: 20150908
  Receipt Date: 20150908
  Transmission Date: 20151125
  Serious: Yes (Hospitalization, Other)
  Sender: FDA-Public Use
  Company Number: US-AMGEN-USASL2015090838

PATIENT
  Age: 68 Year
  Sex: Male

DRUGS (1)
  1. ENBREL [Suspect]
     Active Substance: ETANERCEPT
     Indication: PSORIATIC ARTHROPATHY
     Dosage: 50 MG, QWK
     Route: 065

REACTIONS (8)
  - Urinary tract infection [Unknown]
  - Blindness unilateral [Unknown]
  - Cast application [Unknown]
  - Tendon rupture [Unknown]
  - Drug dose omission [Recovered/Resolved]
  - Cerebrovascular accident [Unknown]
  - Muscle injury [Unknown]
  - Fall [Unknown]

NARRATIVE: CASE EVENT DATE: 2015
